FAERS Safety Report 9412164 (Version 2)
Quarter: 2013Q3

REPORT INFORMATION
  Report Type: Spontaneous
  Country: FR (occurrence: FR)
  Receive Date: 20130722
  Receipt Date: 20130725
  Transmission Date: 20140515
  Serious: Yes (Other)
  Sender: FDA-Public Use
  Company Number: FR-BAYER-2013-087684

PATIENT
  Age: 59 Year
  Sex: Male

DRUGS (1)
  1. NEXAVAR [Suspect]
     Indication: HEPATOCELLULAR CARCINOMA
     Dosage: UNK
     Dates: start: 201303, end: 20130718

REACTIONS (4)
  - Blood creatine increased [Not Recovered/Not Resolved]
  - Anaemia [None]
  - Renal failure acute [None]
  - Diarrhoea [None]
